FAERS Safety Report 8902566 (Version 3)
Quarter: 2013Q1

REPORT INFORMATION
  Report Type: Spontaneous
  Country: GB (occurrence: GB)
  Receive Date: 20121112
  Receipt Date: 20130326
  Transmission Date: 20140127
  Serious: Yes (Death, Hospitalization)
  Sender: FDA-Public Use
  Company Number: GB-PFIZER INC-2012277496

PATIENT
  Age: 70 Year
  Sex: Female
  Weight: 45 kg

DRUGS (5)
  1. GEMCITABINE HYDROCHLORIDE [Suspect]
     Indication: PANCREATIC CARCINOMA METASTATIC
     Dosage: 1000 MG/M2, UNK
     Route: 042
     Dates: start: 20120815, end: 20120912
  2. AMITRIPTYLINE [Concomitant]
  3. CALCICHEW-D3 [Concomitant]
  4. DEXAMETHASONE [Concomitant]
  5. LANSOPRAZOLE [Concomitant]

REACTIONS (2)
  - Pneumonitis [Fatal]
  - Dyspnoea [Unknown]
